FAERS Safety Report 7206831-7 (Version None)
Quarter: 2010Q4

REPORT INFORMATION
  Report Type: 
  Country: None (occurrence: None)
  Receive Date: 20101221
  Receipt Date: 20101210
  Transmission Date: 20110411
  Serious: Yes (Hospitalization)
  Sender: FDA-Public Use
  Company Number: 2009JP005661

PATIENT
  Age: 73 Year
  Sex: Male

DRUGS (3)
  1. VESICARE [Suspect]
     Indication: HYPERTONIC BLADDER
     Dosage: 5 MG, /D, ORAL
     Route: 048
     Dates: start: 20081104, end: 20090121
  2. TAMSULOSIN HCL [Concomitant]
  3. BETHANECHOL CHLORIDE [Concomitant]

REACTIONS (1)
  - RENAL FAILURE ACUTE [None]
